FAERS Safety Report 6095843-5 (Version None)
Quarter: 2009Q1

REPORT INFORMATION
  Report Type: 
  Country: None (occurrence: None)
  Receive Date: 20090227
  Receipt Date: 20080625
  Transmission Date: 20090719
  Serious: No
  Sender: FDA-Public Use
  Company Number: A0734770A

PATIENT
  Age: 56 Year
  Sex: Male

DRUGS (4)
  1. LAMICTAL [Suspect]
     Indication: BIPOLAR DISORDER
     Dosage: 175MG PER DAY
     Route: 048
     Dates: start: 20071201
  2. ZESTRIL [Concomitant]
  3. DOXEPIN HCL [Concomitant]
  4. SEROQUEL [Concomitant]

REACTIONS (1)
  - RASH [None]
